FAERS Safety Report 8169484-X (Version None)
Quarter: 2012Q1

REPORT INFORMATION
  Report Type: 
  Country: None (occurrence: None)
  Receive Date: 20120228
  Receipt Date: 20120220
  Transmission Date: 20120608
  Serious: Yes (Other)
  Sender: FDA-Public Use
  Company Number: JP-ACCORD-012513

PATIENT
  Sex: Male

DRUGS (3)
  1. ETOPOSIDE [Suspect]
     Indication: GERM CELL CANCER
     Dosage: FIRST COURSE 100 MG/M2 FOR 3 DAYS, FROM 2ND 60 MG/M2 FOR 5 DAYS (2 COURSES) + 6 COURSES POSTOPERATIV
  2. CARBOPLATIN [Suspect]
     Indication: GERM CELL CANCER
     Dosage: ON FIRST COURSE FOR ONE DAY
  3. CISPLATIN [Suspect]
     Indication: GERM CELL CANCER
     Dosage: 20 MG/M2 FOR 5 DAYS, AND POSTOPERATIVE 6 COURSES

REACTIONS (2)
  - OFF LABEL USE [None]
  - MENINGIOMA [None]
